FAERS Safety Report 8994232 (Version 2)
Quarter: 2013Q1

REPORT INFORMATION
  Report Type: Spontaneous
  Country: US (occurrence: US)
  Receive Date: 20130102
  Receipt Date: 20130204
  Transmission Date: 20140127
  Serious: No
  Sender: FDA-Public Use
  Company Number: US-AMGEN-USASP2012081347

PATIENT
  Age: 10 Year
  Sex: Female
  Weight: 39.4 kg

DRUGS (3)
  1. ENBREL [Suspect]
     Indication: JUVENILE IDIOPATHIC ARTHRITIS
     Dosage: 25 MG, QWK
     Route: 058
     Dates: start: 20121115
  2. METHOTREXATE [Concomitant]
     Indication: ARTHRITIS
     Dosage: 15 MG, QWK
     Route: 048
     Dates: start: 20121105
  3. INDOMETHACIN                       /00003801/ [Concomitant]
     Indication: ARTHRITIS
     Dosage: 25 MG, BID
     Route: 048
     Dates: start: 20121019, end: 20121212

REACTIONS (7)
  - Flank pain [Recovered/Resolved]
  - Insomnia [Not Recovered/Not Resolved]
  - Rash papular [Recovered/Resolved]
  - Injection site swelling [Recovered/Resolved]
  - Injection site reaction [Recovered/Resolved]
  - Injection site pruritus [Recovered/Resolved]
  - Injection site erythema [Recovered/Resolved]
